FAERS Safety Report 8615264 (Version 2)
Quarter: 2014Q1

REPORT INFORMATION
  Report Type: Spontaneous
  Country: US (occurrence: None)
  Receive Date: 20120323
  Receipt Date: 20130305
  Transmission Date: 20141002
  Serious: Yes (Hospitalization, Disabling, Other)
  Sender: FDA-Public Use
  Company Number: 163-21880-11112683

PATIENT
  Age: 52 Year
  Sex: Female

DRUGS (4)
  1. REVLIMID [Suspect]
     Indication: PLASMA CELL MYELOMA
     Route: 048
     Dates: start: 20110801, end: 20110822
  2. VELCADE [Concomitant]
  3. DEXAMETHASONE [Concomitant]
  4. PACKED BLOOD TRANSFUSION [Concomitant]

REACTIONS (5)
  - Plasma cell myeloma [None]
  - Cerebrovascular accident [None]
  - Thrombocytopenia [None]
  - Epistaxis [None]
  - Vision blurred [None]
